FAERS Safety Report 11343906 (Version 4)
Quarter: 2015Q4

REPORT INFORMATION
  Report Type: Spontaneous
  Country: US (occurrence: US)
  Receive Date: 20150806
  Receipt Date: 20151029
  Transmission Date: 20160304
  Serious: Yes (Other)
  Sender: FDA-Public Use
  Company Number: US-PFIZER INC-2015247221

PATIENT
  Age: 74 Year
  Sex: Female
  Weight: 54 kg

DRUGS (3)
  1. IBRANCE [Suspect]
     Active Substance: PALBOCICLIB
     Dosage: 100 MG, CYCLIC (D1-D21 Q 28D)
     Route: 048
     Dates: start: 20150822
  2. IBRANCE [Suspect]
     Active Substance: PALBOCICLIB
     Indication: BREAST CANCER
     Dosage: 125 MG DAILY, CYCLIC (1-21 Q 28 DAYS)
     Route: 048
     Dates: end: 20150722
  3. IBRANCE [Suspect]
     Active Substance: PALBOCICLIB
     Dosage: 125 MG DAILY, CYCLIC (1-21 Q 28 DAYS)
     Route: 048
     Dates: start: 20150729

REACTIONS (9)
  - Dry mouth [Unknown]
  - Decreased appetite [Unknown]
  - Neutropenia [Unknown]
  - Breast cancer [Unknown]
  - White blood cell count decreased [Unknown]
  - Disease progression [Unknown]
  - Agitation [Unknown]
  - Back pain [Unknown]
  - Asthenia [Unknown]

NARRATIVE: CASE EVENT DATE: 20150722
